FAERS Safety Report 8115399-2 (Version None)
Quarter: 2012Q1

REPORT INFORMATION
  Report Type: 
  Country: None (occurrence: None)
  Receive Date: 20120206
  Receipt Date: 20120206
  Transmission Date: 20120608
  Serious: No
  Sender: FDA-Public Use
  Company Number: None

PATIENT
  Age: 50 Year
  Sex: Female
  Weight: 71.667 kg

DRUGS (1)
  1. CIPROFLOXACIN HCL [Suspect]
     Dosage: 2X DAY

REACTIONS (14)
  - HEADACHE [None]
  - INSOMNIA [None]
  - DIZZINESS [None]
  - DEPRESSION [None]
  - MOOD ALTERED [None]
  - DISTURBANCE IN ATTENTION [None]
  - NIGHTMARE [None]
  - BACK PAIN [None]
  - FATIGUE [None]
  - DYSPNOEA [None]
  - ABDOMINAL PAIN [None]
  - CHILLS [None]
  - ABNORMAL DREAMS [None]
  - HALLUCINATION [None]
